FAERS Safety Report 20236612 (Version 2)
Quarter: 2022Q1

REPORT INFORMATION
  Report Type: Spontaneous
  Country: JP (occurrence: JP)
  Receive Date: 20211228
  Receipt Date: 20220208
  Transmission Date: 20220423
  Serious: Yes (Hospitalization, Other)
  Sender: FDA-Public Use
  Company Number: JP-MLMSERVICE-2021121432719431

PATIENT
  Age: 67 Year
  Sex: Female

DRUGS (5)
  1. FLUOROURACIL [Suspect]
     Active Substance: FLUOROURACIL
     Indication: Breast cancer stage II
     Dosage: 500 MG/M^2  EVERY 3 WEEKS FOR FOUR CYCLES
  2. EPIRUBICIN [Suspect]
     Active Substance: EPIRUBICIN
     Indication: Breast cancer stage II
     Dosage: 100 MG/M^2  EVERY 3 WEEKS FOR FOUR CYCLES
  3. PEGFILGRASTIM [Suspect]
     Active Substance: PEGFILGRASTIM
     Indication: Breast cancer stage II
  4. CYCLOPHOSPHAMIDE [Suspect]
     Active Substance: CYCLOPHOSPHAMIDE
     Indication: Breast cancer stage II
     Dosage: 500 MG/M^2  EVERY 3 WEEKS FOR FOUR CYCLES
  5. DOCETAXEL [Concomitant]
     Active Substance: DOCETAXEL
     Indication: Breast cancer stage II
     Dosage: 75MG/M^2  EVERY 3 WEEKS FOR 3 CYCLES

REACTIONS (1)
  - Interstitial lung disease [Recovered/Resolved]
